FAERS Safety Report 7379136 (Version 3)
Quarter: 2012Q4

REPORT INFORMATION
  Report Type: Report from Study
  Country: US (occurrence: US)
  Receive Date: 20100506
  Receipt Date: 20120913
  Transmission Date: 20130627
  Serious: Yes (Death, Life-Threatening, Hospitalization)
  Sender: FDA-Public Use
  Company Number: US-ROCHE-701217

PATIENT
  Age: 55 Year
  Sex: Female
  Weight: 77.1 kg

DRUGS (18)
  1. PEMETREXED [Suspect]
     Indication: NON-SMALL CELL LUNG CANCER
     Dosage: DOSE: 500 MG/M2.
     Route: 042
  2. CARBOPLATIN [Suspect]
     Indication: NON-SMALL CELL LUNG CANCER
     Route: 042
  3. AVASTIN [Suspect]
     Indication: NON-SMALL CELL LUNG CANCER
     Route: 042
     Dates: start: 20091120
  4. BUDESONIDE/FORMOTEROL FUMARATE [Concomitant]
  5. ACETYLSALICYLIC ACID [Concomitant]
  6. FOLIC ACID [Concomitant]
     Route: 065
  7. DEXAMETHASONE [Concomitant]
     Route: 065
  8. EFFEXOR [Concomitant]
     Route: 065
  9. FERROUS GLUCONATE [Concomitant]
  10. LORAZEPAM [Concomitant]
     Route: 065
  11. MEDROXIPROGESTERONE ACETATE [Concomitant]
     Route: 065
  12. NORCO [Concomitant]
     Route: 065
  13. OXYCONTIN [Concomitant]
     Route: 065
  14. REGLAN [Concomitant]
     Route: 065
  15. SYMBICORT [Concomitant]
  16. ASPIRIN [Concomitant]
  17. VITAMIN B12 [Concomitant]
     Route: 065
  18. METOCLOPRAMIDE HYDROCHLORIDE [Concomitant]

REACTIONS (10)
  - Respiratory failure [Fatal]
  - Empyema [Unknown]
  - Bronchial fistula [Unknown]
  - Hydropneumothorax [None]
  - Urine analysis abnormal [None]
  - Streptococcus test positive [None]
  - Bradycardia [None]
  - Blood glucose increased [None]
  - Cardiac arrest [None]
  - Septic shock [None]
